FAERS Safety Report 6256424-3 (Version None)
Quarter: 2009Q3

REPORT INFORMATION
  Report Type: 
  Country: None (occurrence: None)
  Receive Date: 20090701
  Receipt Date: 20090701
  Transmission Date: 20100115
  Serious: Yes (Hospitalization)
  Sender: FDA-Public Use
  Company Number: None

PATIENT
  Age: 9 Month
  Sex: Male

DRUGS (1)
  1. AMOXICILLIN [Suspect]
     Indication: OTITIS MEDIA ACUTE
     Dosage: 300MG TID PO
     Route: 048
     Dates: start: 20090513, end: 20090518

REACTIONS (2)
  - ERYTHEMA MULTIFORME [None]
  - NO REACTION ON PREVIOUS EXPOSURE TO DRUG [None]
